FAERS Safety Report 6632022-4 (Version None)
Quarter: 2010Q1

REPORT INFORMATION
  Report Type: 
  Country: None (occurrence: None)
  Receive Date: 20100312
  Receipt Date: 20090609
  Transmission Date: 20100710
  Serious: No
  Sender: FDA-Public Use
  Company Number: US-BIOGENIDEC-2009BI017781

PATIENT
  Age: 78 Year
  Sex: Male

DRUGS (1)
  1. AVONEX [Suspect]
     Indication: MULTIPLE SCLEROSIS
     Route: 030
     Dates: start: 20090304

REACTIONS (4)
  - BALANCE DISORDER [None]
  - DEPRESSED MOOD [None]
  - MEMORY IMPAIRMENT [None]
  - MOOD SWINGS [None]
